FAERS Safety Report 6400928-7 (Version None)
Quarter: 2009Q4

REPORT INFORMATION
  Report Type: 
  Country: None (occurrence: None)
  Receive Date: 20091009
  Receipt Date: 20090925
  Transmission Date: 20100525
  Serious: Yes (Other)
  Sender: FDA-Public Use
  Company Number: MC200900347

PATIENT
  Age: 49 Year
  Sex: Female

DRUGS (16)
  1. CLEVIPREX [Suspect]
     Indication: HYPERTENSION
     Dosage: SEE IMAGE
     Route: 042
     Dates: start: 20090821, end: 20090821
  2. HYDRALAZINE (HYDRALAZINE HYDROCHLORIDE) [Concomitant]
  3. HYDRALAZINE HCL (HYDRALAZINE HYDROCHLORIDE) [Concomitant]
  4. LOPRESSOR [Concomitant]
  5. DILAUDID [Concomitant]
  6. FENTANYL CITRATE [Concomitant]
  7. ZOSYN [Concomitant]
  8. VANCOMYCIN (VAMCOMYCIN) [Concomitant]
  9. TPN [Concomitant]
  10. LASIX [Concomitant]
  11. TYLENOL [Concomitant]
  12. DIFLUCAN [Concomitant]
  13. NITROPASTE (GLYCERYL TRINITRATE) [Concomitant]
  14. CATAPRES-TTS-1 [Concomitant]
  15. NORVASC [Concomitant]
  16. CATAPRES [Concomitant]

REACTIONS (7)
  - BLOOD PRESSURE INADEQUATELY CONTROLLED [None]
  - CARDIAC FAILURE CONGESTIVE [None]
  - DRUG INEFFECTIVE [None]
  - DYSPNOEA [None]
  - FLUID OVERLOAD [None]
  - INCISION SITE PAIN [None]
  - PAIN [None]
